FAERS Safety Report 8791902 (Version 1)
Quarter: 2012Q4

REPORT INFORMATION
  Report Type: 
  Country: DE (occurrence: DE)
  Receive Date: 20120918
  Receipt Date: 20120918
  Transmission Date: 20130627
  Serious: Yes (Hospitalization, Disabling, Other)
  Sender: FDA-Public Use
  Company Number: GXKR2012DE002433

PATIENT
  Sex: Male
  Weight: 64 kg

DRUGS (10)
  1. FLUVASTATIN [Suspect]
     Indication: HYPERCHOLESTEROLAEMIA
     Dosage: UNK mg, UNK
     Route: 048
     Dates: start: 201206, end: 2012
  2. SIMVASTATIN [Suspect]
     Indication: HYPERCHOLESTEROLAEMIA
     Dosage: UNK mg, UNK
     Route: 048
     Dates: start: 2006, end: 2012
  3. PRAVASTATIN [Suspect]
     Indication: HYPERCHOLESTEROLAEMIA
     Dosage: UNK mg, BID
     Route: 048
     Dates: start: 2006, end: 2012
  4. INEGY [Suspect]
     Indication: HYPERCHOLESTEROLAEMIA
     Dosage: 1 DF, BID
     Route: 048
     Dates: start: 2006, end: 2012
  5. ASS [Concomitant]
     Dosage: 100 mg, UNK
     Route: 048
  6. CLOPIDOGREL [Concomitant]
  7. BISOPROLOL [Concomitant]
  8. NEMEXIN [Concomitant]
  9. TARGIN [Concomitant]
  10. OPIOIDS [Concomitant]

REACTIONS (15)
  - Bone pain [Not Recovered/Not Resolved]
  - Neurodermatitis [Unknown]
  - Haemarthrosis [Unknown]
  - Rhabdomyolysis [Unknown]
  - Muscle atrophy [Unknown]
  - Musculoskeletal pain [Unknown]
  - Pain [Unknown]
  - Myalgia [Unknown]
  - Arthralgia [Unknown]
  - Hypersensitivity [Unknown]
  - Pruritus [Recovered/Resolved]
  - Urticaria [Unknown]
  - Physical disability [Unknown]
  - Weight decreased [Unknown]
  - Insomnia [Unknown]
